FAERS Safety Report 8503119-9 (Version None)
Quarter: 2012Q3

REPORT INFORMATION
  Report Type: 
  Country: None (occurrence: None)
  Receive Date: 20120711
  Receipt Date: 20120709
  Transmission Date: 20120928
  Serious: No
  Sender: FDA-Public Use
  Company Number: US-PFIZER INC-2012164325

PATIENT
  Sex: Female
  Weight: 63.492 kg

DRUGS (3)
  1. VISTARIL [Concomitant]
     Indication: NERVOUS SYSTEM DISORDER
     Dosage: UNK
  2. NEURONTIN [Suspect]
     Indication: PAIN
     Dosage: 600 MG, 2X/DAY
     Route: 048
     Dates: start: 20111001
  3. SINEMET [Concomitant]
     Indication: RESTLESSNESS
     Dosage: UNK

REACTIONS (3)
  - PAIN [None]
  - BLOOD CHOLESTEROL INCREASED [None]
  - DRUG INEFFECTIVE [None]
